FAERS Safety Report 17447754 (Version 2)
Quarter: 2020Q1

REPORT INFORMATION
  Report Type: Spontaneous
  Country: ES (occurrence: ES)
  Receive Date: 20200221
  Receipt Date: 20200309
  Transmission Date: 20200409
  Serious: Yes (Other)
  Sender: FDA-Public Use
  Company Number: ES-AMAG PHARMACEUTICALS, INC.-AMAG202000695

PATIENT
  Age: 53 Year
  Sex: Female

DRUGS (1)
  1. INTRAROSA [Suspect]
     Active Substance: PRASTERONE
     Indication: ATROPHIC VULVOVAGINITIS
     Dosage: 1DF/24 H FOR 3 WEEKS AND THEN 2DF/WEEK
     Route: 067
     Dates: start: 20200120

REACTIONS (3)
  - Off label use [Unknown]
  - Contraindicated product prescribed [Unknown]
  - Incorrect dose administered [Unknown]

NARRATIVE: CASE EVENT DATE: 20200120
